FAERS Safety Report 15458702 (Version 1)
Quarter: 2018Q4

REPORT INFORMATION
  Report Type: Spontaneous
  Country: US (occurrence: US)
  Receive Date: 20181001
  Receipt Date: 20181001
  Transmission Date: 20190204
  Serious: Yes (Hospitalization)
  Sender: FDA-Public Use
  Company Number: None

PATIENT
  Age: 26 Year

DRUGS (4)
  1. BOTOX [Suspect]
     Active Substance: ONABOTULINUMTOXINA
     Indication: MIGRAINE WITHOUT AURA
     Dosage: ?          OTHER FREQUENCY:Q12W;?
     Route: 030
     Dates: start: 20180628
  2. OXYCOD / APAP [Concomitant]
  3. LEVOFLOXACIN. [Concomitant]
     Active Substance: LEVOFLOXACIN
  4. CARAFATE [Concomitant]
     Active Substance: SUCRALFATE

REACTIONS (2)
  - Pneumonia [None]
  - Gallbladder operation [None]

NARRATIVE: CASE EVENT DATE: 20180924
